FAERS Safety Report 11599180 (Version 1)
Quarter: 2015Q4

REPORT INFORMATION
  Report Type: Report from Study
  Country: US (occurrence: US)
  Receive Date: 20151006
  Receipt Date: 20151006
  Transmission Date: 20160304
  Serious: No
  Sender: FDA-Public Use
  Company Number: PHEH2015US017632

PATIENT
  Sex: Female
  Weight: 79.37 kg

DRUGS (1)
  1. GILENYA [Suspect]
     Active Substance: FINGOLIMOD HYDROCHLORIDE
     Indication: MULTIPLE SCLEROSIS
     Dosage: 0.5 MG, QD
     Route: 048
     Dates: start: 20150618

REACTIONS (8)
  - Gastrointestinal disorder [Unknown]
  - Multiple sclerosis relapse [Recovered/Resolved]
  - Weight increased [Unknown]
  - Asthenia [Unknown]
  - Back pain [Recovered/Resolved]
  - Fatigue [Recovering/Resolving]
  - Malaise [Unknown]
  - Headache [Recovered/Resolved]
